FAERS Safety Report 11859316 (Version 2)
Quarter: 2015Q4

REPORT INFORMATION
  Report Type: Report from Study
  Country: US (occurrence: US)
  Receive Date: 20151222
  Receipt Date: 20151224
  Transmission Date: 20160305
  Serious: Yes (Other)
  Sender: FDA-Public Use
  Company Number: US-ASTRAZENECA-2015SF28265

PATIENT
  Sex: Female
  Weight: 58.1 kg

DRUGS (8)
  1. COMBIVENT [Concomitant]
     Active Substance: ALBUTEROL SULFATE\IPRATROPIUM BROMIDE
     Indication: BLOOD PRESSURE ABNORMAL
  2. OXYGEN. [Concomitant]
     Active Substance: OXYGEN
  3. SINGULAIR [Concomitant]
     Active Substance: MONTELUKAST SODIUM
     Dosage: 10 MG AT BEDTIME.
  4. AMLODIPINE [Concomitant]
     Active Substance: AMLODIPINE BESYLATE
     Indication: BLOOD PRESSURE ABNORMAL
  5. SYMBICORT [Suspect]
     Active Substance: BUDESONIDE\FORMOTEROL FUMARATE DIHYDRATE
     Indication: CHRONIC OBSTRUCTIVE PULMONARY DISEASE
     Dosage: TWO PUFFS, TWICE DAILY
     Route: 055
  6. PREDNISONE. [Concomitant]
     Active Substance: PREDNISONE
     Dosage: TABLETS FOR 4 DAYS THEN 2 TABLETS FOR 3 DAYS THEN 1 TAB FOR ONE DAY.
     Dates: start: 201512
  7. LISINOPRIL. [Suspect]
     Active Substance: LISINOPRIL
     Indication: HYPERTENSION
     Route: 048
  8. LEVOFLOXACIN. [Concomitant]
     Active Substance: LEVOFLOXACIN
     Indication: SINUSITIS
     Dosage: IN THE EVENING 5 PILLS.

REACTIONS (7)
  - Confusional state [Unknown]
  - Drug hypersensitivity [Unknown]
  - Sinusitis [Unknown]
  - Peripheral swelling [Unknown]
  - Thrombosis [Unknown]
  - Swollen tongue [Unknown]
  - Dyspnoea [Unknown]
